FAERS Safety Report 16084150 (Version 1)
Quarter: 2019Q1

REPORT INFORMATION
  Report Type: Spontaneous
  Country: US (occurrence: US)
  Receive Date: 20190318
  Receipt Date: 20190318
  Transmission Date: 20190418
  Serious: No
  Sender: FDA-Public Use
  Company Number: US-PFIZER INC-2019115650

PATIENT
  Age: 66 Year
  Sex: Female

DRUGS (1)
  1. IBRANCE [Suspect]
     Active Substance: PALBOCICLIB
     Dosage: 125 MG, CYCLIC, (ONE DAILY FOR 21 DAYS ON, 7 DAYS OFF)
     Dates: start: 20160301

REACTIONS (4)
  - Hot flush [Unknown]
  - Fatigue [Unknown]
  - Oropharyngeal plaque [Unknown]
  - Memory impairment [Unknown]
